FAERS Safety Report 4997356-8 (Version None)
Quarter: 2006Q1

REPORT INFORMATION
  Report Type: 
  Country: None (occurrence: None)
  Receive Date: 20060315
  Receipt Date: 20051118
  Transmission Date: 20060701
  Serious: Yes (Other)
  Sender: FDA-Public Use
  Company Number: 424524

PATIENT
  Age: 51 Year
  Sex: Female

DRUGS (8)
  1. BONIVA [Suspect]
     Indication: OSTEOPOROSIS
     Dosage: 150 MG 1 PER MONTH ORAL
     Route: 048
     Dates: start: 20051104
  2. OMEPRAZOLE [Concomitant]
  3. ASPIRIN [Concomitant]
  4. CALCIUM (CALCIUM) [Concomitant]
  5. VITAMIN D NOS (VITAMIN D NOS) [Concomitant]
  6. MEGAVITAMINS (MULTIVITAMINS NOS) [Concomitant]
  7. ANTIBIOTICS NOS (ANTIBIOTIC NOS) [Concomitant]
  8. LIPITOR [Concomitant]

REACTIONS (3)
  - MUSCLE SPASMS [None]
  - MYALGIA [None]
  - PAIN IN JAW [None]
